FAERS Safety Report 8770995 (Version 2)
Quarter: 2012Q4

REPORT INFORMATION
  Report Type: 
  Country: US (occurrence: US)
  Receive Date: 20120906
  Receipt Date: 20121027
  Transmission Date: 20130627
  Serious: No
  Sender: FDA-Public Use
  Company Number: US-009507513-1208USA011621

PATIENT
  Age: 35 Year
  Sex: Male
  Weight: 99.77 kg

DRUGS (5)
  1. SAPHRIS [Suspect]
     Indication: SCHIZOPHRENIA
     Dosage: 5 mg, bid
     Route: 060
     Dates: end: 20120821
  2. SAPHRIS [Suspect]
     Indication: BIPOLAR DISORDER
  3. LISINOPRIL [Concomitant]
  4. LYRICA [Concomitant]
  5. TRAZODONE HYDROCHLORIDE [Concomitant]

REACTIONS (3)
  - Pain [Recovered/Resolved]
  - Abdominal pain [Recovered/Resolved]
  - Heart rate irregular [Recovered/Resolved]
